FAERS Safety Report 5235495-7 (Version None)
Quarter: 2007Q1

REPORT INFORMATION
  Report Type: 
  Country: None (occurrence: None)
  Receive Date: 20070207
  Receipt Date: 20070207
  Transmission Date: 20070707
  Serious: Yes (Other)
  Sender: FDA-Public Use
  Company Number: None

PATIENT
  Sex: Female
  Weight: 45.3597 kg

DRUGS (8)
  1. ACTONEL [Suspect]
     Indication: OSTEOPOROSIS
     Dosage: 1 TABLET WEEKLY PO
     Route: 048
     Dates: start: 20051024, end: 20061227
  2. TOPAMAX [Concomitant]
  3. VICODIN [Concomitant]
  4. SOMA [Concomitant]
  5. PENICILLIN V POTASSIUM [Concomitant]
  6. XANAX [Concomitant]
  7. MS CONTIN [Concomitant]
  8. METHADONE HCL [Concomitant]

REACTIONS (2)
  - ABSCESS [None]
  - PHARMACEUTICAL PRODUCT COMPLAINT [None]
